FAERS Safety Report 22817192 (Version 4)
Quarter: 2023Q4

REPORT INFORMATION
  Report Type: Report from Study
  Country: US (occurrence: US)
  Receive Date: 20230812
  Receipt Date: 20231112
  Transmission Date: 20240110
  Serious: Yes (Hospitalization, Other)
  Sender: FDA-Public Use
  Company Number: US-002147023-NVSC2023US173162

PATIENT
  Sex: Female

DRUGS (2)
  1. ENTRESTO [Suspect]
     Active Substance: SACUBITRIL\VALSARTAN
     Indication: Cardiac failure
     Dosage: 1 DOSAGE FORM, BID
     Route: 048
     Dates: start: 2019
  2. ENTRESTO [Suspect]
     Active Substance: SACUBITRIL\VALSARTAN
     Dosage: 24/26 MG, BID (ONE HALF TABLET TWICE A DAY)
     Route: 048

REACTIONS (17)
  - Fall [Recovered/Resolved]
  - Lip injury [Unknown]
  - Swelling [Unknown]
  - Hand fracture [Recovered/Resolved]
  - Ejection fraction decreased [Not Recovered/Not Resolved]
  - Depression [Not Recovered/Not Resolved]
  - Anxiety [Not Recovered/Not Resolved]
  - Memory impairment [Unknown]
  - Dyspnoea [Unknown]
  - Device malfunction [Recovered/Resolved]
  - Off label use [Unknown]
  - Dizziness [Recovering/Resolving]
  - Feeling abnormal [Recovering/Resolving]
  - Wrong technique in product usage process [Unknown]
  - Arthritis [Unknown]
  - Rotator cuff syndrome [Recovering/Resolving]
  - Arthralgia [Unknown]

NARRATIVE: CASE EVENT DATE: 20200101
